FAERS Safety Report 8214267-5 (Version None)
Quarter: 2012Q1

REPORT INFORMATION
  Report Type: 
  Country: None (occurrence: None)
  Receive Date: 20120315
  Receipt Date: 20120315
  Transmission Date: 20120608
  Serious: Yes (Hospitalization, Other)
  Sender: FDA-Public Use
  Company Number: None

PATIENT
  Age: 53 Year
  Sex: Male

DRUGS (7)
  1. REVLIMID [Suspect]
     Indication: MULTIPLE MYELOMA
     Dosage: 10MG 3X/WK ORALLY
     Route: 048
     Dates: start: 20090701, end: 20110801
  2. ALBUTEROL [Concomitant]
  3. PHOSLO [Concomitant]
  4. RENAL [Concomitant]
  5. LISINOPRIL [Concomitant]
  6. PREDNISONE [Concomitant]
  7. ATROVENT [Concomitant]

REACTIONS (1)
  - CEREBROVASCULAR ACCIDENT [None]
